FAERS Safety Report 25251052 (Version 1)
Quarter: 2025Q2

REPORT INFORMATION
  Report Type: Spontaneous
  Country: US (occurrence: US)
  Receive Date: 20250429
  Receipt Date: 20250429
  Transmission Date: 20250717
  Serious: No
  Sender: MYLAN
  Company Number: US-MYLANLABS-2025M1034254

PATIENT
  Sex: Male

DRUGS (1)
  1. WIXELA INHUB [Suspect]
     Active Substance: FLUTICASONE PROPIONATE\SALMETEROL XINAFOATE
     Indication: Product used for unknown indication

REACTIONS (8)
  - Headache [Unknown]
  - Hypoaesthesia oral [Unknown]
  - Pharyngeal hypoaesthesia [Unknown]
  - Tongue discolouration [Unknown]
  - Tooth discolouration [Unknown]
  - Oropharyngeal discolouration [Unknown]
  - Device use issue [Unknown]
  - Incorrect dose administered [Unknown]
